FAERS Safety Report 18691032 (Version 1)
Quarter: 2021Q1

REPORT INFORMATION
  Report Type: Report from Study
  Country: US (occurrence: US)
  Receive Date: 20210101
  Receipt Date: 20210101
  Transmission Date: 20210419
  Serious: Yes (Hospitalization)
  Sender: FDA-Public Use
  Company Number: NVSC2020US340670

PATIENT
  Sex: Female

DRUGS (2)
  1. PIQRAY [Suspect]
     Active Substance: ALPELISIB
     Indication: BREAST CANCER
     Dosage: 300 MG, QD
     Route: 048
  2. PIQRAY [Suspect]
     Active Substance: ALPELISIB
     Dosage: 150 MG, QD
     Route: 048

REACTIONS (6)
  - Pyrexia [Recovered/Resolved]
  - Hyperglycaemia [Recovering/Resolving]
  - Clostridium difficile infection [Recovering/Resolving]
  - Diarrhoea [Recovering/Resolving]
  - SARS-CoV-2 test positive [Recovering/Resolving]
  - Rash [Recovering/Resolving]
